FAERS Safety Report 19458824 (Version 1)
Quarter: 2021Q2

REPORT INFORMATION
  Report Type: Spontaneous
  Country: US (occurrence: US)
  Receive Date: 20210624
  Receipt Date: 20210624
  Transmission Date: 20210721
  Serious: No
  Sender: FDA-Public Use
  Company Number: None

PATIENT
  Age: 66 Year
  Sex: Female
  Weight: 56.25 kg

DRUGS (2)
  1. CARBOPLATIN. [Suspect]
     Active Substance: CARBOPLATIN
     Indication: OVARIAN GERM CELL CANCER
     Dosage: ?          OTHER FREQUENCY:EVERY3WEEKS;?
  2. CARBOPLATIN. [Suspect]
     Active Substance: CARBOPLATIN
     Indication: METASTASES TO OVARY
     Dosage: ?          OTHER FREQUENCY:EVERY3WEEKS;?

REACTIONS (8)
  - Asthenia [None]
  - Cold sweat [None]
  - Oxygen saturation decreased [None]
  - Infusion related reaction [None]
  - Heart rate increased [None]
  - Pyrexia [None]
  - Blood glucose abnormal [None]
  - Malaise [None]
